FAERS Safety Report 24246207 (Version 4)
Quarter: 2025Q1

REPORT INFORMATION
  Report Type: Report from Study
  Country: CN (occurrence: CN)
  Receive Date: 20240824
  Receipt Date: 20250324
  Transmission Date: 20250409
  Serious: Yes (Hospitalization, Other)
  Sender: TAKEDA
  Company Number: CN-TAKEDA-2024TUS082407

PATIENT
  Age: 40 Year
  Sex: Female
  Weight: 63.5 kg

DRUGS (3)
  1. IXAZOMIB [Suspect]
     Active Substance: IXAZOMIB
     Indication: Plasma cell myeloma
  2. DEXAMETHASONE [Suspect]
     Active Substance: DEXAMETHASONE
     Indication: Plasma cell myeloma
  3. LENALIDOMIDE [Suspect]
     Active Substance: LENALIDOMIDE
     Indication: Plasma cell myeloma

REACTIONS (8)
  - Neuropathy peripheral [Recovered/Resolved]
  - Bronchopulmonary aspergillosis [Recovering/Resolving]
  - Oral herpes [Recovered/Resolved]
  - Pulmonary mass [Not Recovered/Not Resolved]
  - Cervical cyst [Not Recovered/Not Resolved]
  - Insomnia [Recovered/Resolved]
  - Hepatic steatosis [Not Recovered/Not Resolved]
  - COVID-19 [Recovered/Resolved]

NARRATIVE: CASE EVENT DATE: 20240614
